FAERS Safety Report 8152453-3 (Version None)
Quarter: 2012Q1

REPORT INFORMATION
  Report Type: 
  Country: None (occurrence: None)
  Receive Date: 20120221
  Receipt Date: 20120208
  Transmission Date: 20120608
  Serious: Yes (Other)
  Sender: FDA-Public Use
  Company Number: DE-UCBSA-051447

PATIENT
  Age: 26 Year
  Sex: Female

DRUGS (3)
  1. CEFUROXIME [Concomitant]
     Indication: STREPTOCOCCUS TEST POSITIVE
     Dates: start: 20110101
  2. KEPPRA [Suspect]
     Indication: EPILEPSY
     Dosage: 1000-0-1000
     Route: 048
     Dates: start: 20101231, end: 20110926
  3. TRILEPTAL [Suspect]
     Indication: EPILEPSY
     Dosage: 600-0-900. DAILY DOSE:
     Route: 048
     Dates: start: 20101231, end: 20110926

REACTIONS (3)
  - PREGNANCY [None]
  - CAESAREAN SECTION [None]
  - MATERNAL EXPOSURE DURING PREGNANCY [None]
